FAERS Safety Report 15482223 (Version 2)
Quarter: 2018Q4

REPORT INFORMATION
  Report Type: Spontaneous
  Country: JP (occurrence: JP)
  Receive Date: 20181010
  Receipt Date: 20181030
  Transmission Date: 20190205
  Serious: Yes (Hospitalization)
  Sender: FDA-Public Use
  Company Number: JP-TEVA-2018-JP-962760

PATIENT
  Age: 67 Year
  Sex: Male

DRUGS (17)
  1. AZILECT [Suspect]
     Active Substance: RASAGILINE MESYLATE
     Indication: PARKINSON^S DISEASE
     Dosage: INTRAGASTRIC ROUTE OF ADMINISTRATION
     Route: 050
     Dates: start: 20180614
  2. QUETIAPINE. [Concomitant]
     Active Substance: QUETIAPINE
  3. BISOLVON [Concomitant]
     Active Substance: BROMHEXINE HYDROCHLORIDE
  4. LUPRAC [Concomitant]
     Active Substance: TORSEMIDE
  5. SENNOSIDE A+B [Concomitant]
     Active Substance: SENNOSIDES A AND B
  6. MEMARY [Concomitant]
     Active Substance: MEMANTINE HYDROCHLORIDE
  7. TRERIEF [Concomitant]
     Active Substance: ZONISAMIDE
  8. DOPACOL [Concomitant]
     Active Substance: CARBIDOPA\LEVODOPA
  9. BROTIZOLAM [Concomitant]
     Active Substance: BROTIZOLAM
  10. LOXONIN [Concomitant]
     Active Substance: LOXOPROFEN SODIUM
  11. MAGMITT [Concomitant]
     Active Substance: MAGNESIUM OXIDE
  12. ZINC OXIDE. [Concomitant]
     Active Substance: ZINC OXIDE
  13. RIVASTACH [Concomitant]
     Active Substance: RIVASTIGMINE
  14. CELECOX [Concomitant]
     Active Substance: CELECOXIB
  15. DOPS [Concomitant]
     Active Substance: DROXIDOPA
  16. LANDSEN [Concomitant]
     Active Substance: CLONAZEPAM
  17. HIRUDOID [Concomitant]
     Active Substance: GLYCOSAMINOGLYCANS

REACTIONS (3)
  - Wrong technique in product usage process [Unknown]
  - Product prescribing error [Unknown]
  - Pneumonia [Recovering/Resolving]

NARRATIVE: CASE EVENT DATE: 20180614
